FAERS Safety Report 12271486 (Version 3)
Quarter: 2016Q3

REPORT INFORMATION
  Report Type: Spontaneous
  Country: FR (occurrence: FR)
  Receive Date: 20160415
  Receipt Date: 20160704
  Transmission Date: 20161109
  Serious: Yes (Hospitalization)
  Sender: FDA-Public Use
  Company Number: PHHY2016FR047093

PATIENT
  Age: 60 Year
  Sex: Female

DRUGS (12)
  1. PACLITAXEL HOSPIRA [Suspect]
     Active Substance: PACLITAXEL
     Indication: NON-SMALL CELL LUNG CANCER METASTATIC
     Dosage: 280 MG, QD
     Route: 042
     Dates: start: 20151124
  2. CARBOPLATIN HOSPIRA [Suspect]
     Active Substance: CARBOPLATIN
     Dosage: 413 MG, QD
     Route: 042
     Dates: start: 20160127, end: 20160127
  3. POLARAMINE [Suspect]
     Active Substance: DEXCHLORPHENIRAMINE MALEATE
     Indication: PREMEDICATION
     Dosage: 05 MG, (PER COURSE)
     Route: 042
     Dates: start: 20151124, end: 20160127
  4. CARBOPLATIN HOSPIRA [Suspect]
     Active Substance: CARBOPLATIN
     Indication: NON-SMALL CELL LUNG CANCER METASTATIC
     Dosage: 700 MG, QD
     Route: 042
     Dates: start: 20151124
  5. RANPLEX [Suspect]
     Active Substance: RANITIDINE HYDROCHLORIDE
     Indication: PREMEDICATION
     Dosage: 50 MG, (PER 1 COURSE)
     Route: 042
     Dates: start: 20151124, end: 20160127
  6. ZOPHREN [Suspect]
     Active Substance: ONDANSETRON
     Indication: VOMITING
     Dosage: 01 DF, (PER 1 COURSE)
     Route: 042
     Dates: start: 20151124, end: 20160127
  7. PACLITAXEL HOSPIRA [Suspect]
     Active Substance: PACLITAXEL
     Dosage: 266 MG, QD
     Route: 042
     Dates: start: 20160127, end: 20160127
  8. CARBOPLATIN HOSPIRA [Suspect]
     Active Substance: CARBOPLATIN
     Dosage: 470.5 MG, QD
     Route: 042
     Dates: start: 20151216
  9. PACLITAXEL HOSPIRA [Suspect]
     Active Substance: PACLITAXEL
     Dosage: 255.5 MG, QD
     Route: 042
     Dates: start: 20151216
  10. PACLITAXEL HOSPIRA [Suspect]
     Active Substance: PACLITAXEL
     Dosage: 255.5 MG, QD
     Route: 042
     Dates: start: 20160106
  11. SOLU-MEDROL [Suspect]
     Active Substance: METHYLPREDNISOLONE SODIUM SUCCINATE
     Indication: NON-SMALL CELL LUNG CANCER METASTATIC
     Dosage: 120 MG, (PER 1 COURSE)
     Route: 042
     Dates: start: 20151124, end: 20160127
  12. CARBOPLATIN HOSPIRA [Suspect]
     Active Substance: CARBOPLATIN
     Dosage: 489 MG, QD
     Route: 042
     Dates: start: 20160106

REACTIONS (3)
  - Transaminases increased [Recovering/Resolving]
  - Pseudolymphoma [Not Recovered/Not Resolved]
  - Gamma-glutamyltransferase increased [Recovering/Resolving]

NARRATIVE: CASE EVENT DATE: 20160211
